FAERS Safety Report 17370173 (Version 1)
Quarter: 2020Q1

REPORT INFORMATION
  Report Type: Spontaneous
  Country: US (occurrence: US)
  Receive Date: 20200205
  Receipt Date: 20200205
  Transmission Date: 20200409
  Serious: Yes (Other)
  Sender: FDA-Public Use
  Company Number: US-HORIZON-PRO-0040-2020

PATIENT
  Age: 22 Year
  Sex: Female

DRUGS (1)
  1. PROCYSBI [Suspect]
     Active Substance: CYSTEAMINE BITARTRATE
     Indication: CYSTINOSIS
     Dosage: 750MG BID
     Route: 048

REACTIONS (3)
  - Renal transplant [Unknown]
  - Disease progression [Unknown]
  - End stage renal disease [Unknown]
